FAERS Safety Report 25836521 (Version 1)
Quarter: 2025Q3

REPORT INFORMATION
  Report Type: Spontaneous
  Country: US (occurrence: US)
  Receive Date: 20250923
  Receipt Date: 20250923
  Transmission Date: 20251020
  Serious: Yes (Other)
  Sender: DR REDDYS
  Company Number: None

PATIENT
  Age: 74 Year
  Sex: Male

DRUGS (4)
  1. PROPOFOL [Suspect]
     Active Substance: PROPOFOL
     Indication: General anaesthesia
  2. FENTANYL [Concomitant]
     Active Substance: FENTANYL
     Indication: General anaesthesia
     Route: 042
  3. LIDOCAINE [Concomitant]
     Active Substance: LIDOCAINE
     Indication: General anaesthesia
  4. SUCCINYLCHOLINE [Concomitant]
     Active Substance: SUCCINYLCHOLINE
     Indication: General anaesthesia

REACTIONS (2)
  - Hallucination [Recovered/Resolved]
  - Hypersexuality [Recovered/Resolved]
